FAERS Safety Report 5047889-3 (Version None)
Quarter: 2006Q3

REPORT INFORMATION
  Report Type: 
  Country: None (occurrence: None)
  Receive Date: 20060710
  Receipt Date: 20060710
  Transmission Date: 20061208
  Serious: Yes (Life-Threatening, Other)
  Sender: FDA-Public Use
  Company Number: None

PATIENT
  Sex: Male
  Weight: 124.7392 kg

DRUGS (11)
  1. LANTUS [Suspect]
  2. AVANDIA [Suspect]
  3. GLIPIZIDE [Suspect]
  4. METFORMIN [Suspect]
  5. DIGOXIN [Concomitant]
  6. DILTIAZEM HCL [Concomitant]
  7. TOPRAL [Concomitant]
  8. CLONADINE [Concomitant]
  9. LISINOPRIL [Concomitant]
  10. SULAR [Concomitant]
  11. CARDURA [Concomitant]

REACTIONS (3)
  - BLOOD GLUCOSE DECREASED [None]
  - DRUG INTERACTION [None]
  - HEART RATE DECREASED [None]
